FAERS Safety Report 7943767-8 (Version None)
Quarter: 2011Q4

REPORT INFORMATION
  Report Type: 
  Country: None (occurrence: None)
  Receive Date: 20111128
  Receipt Date: 20111114
  Transmission Date: 20120403
  Serious: Yes (Hospitalization)
  Sender: FDA-Public Use
  Company Number: FR-MYLANLABS-2011S1024069

PATIENT
  Age: 39 Year
  Sex: Female

DRUGS (9)
  1. NEFOPAM [Suspect]
     Indication: OSTEITIS
     Route: 065
  2. PREDNISONE TAB [Suspect]
     Indication: DRUG RASH WITH EOSINOPHILIA AND SYSTEMIC SYMPTOMS
     Dosage: 1 MG/KG/DAY; LATER 10 MG/DAY
     Route: 048
  3. GENTAMICIN [Suspect]
     Indication: OSTEITIS
     Route: 065
  4. CEFTRIAXONE [Suspect]
     Indication: OSTEITIS
     Route: 065
  5. TRAMADOL HCL [Suspect]
     Indication: OSTEITIS
     Route: 065
  6. PREDNISONE TAB [Suspect]
     Dosage: 30 MG/DAY
     Route: 048
  7. VANCOMYCIN [Suspect]
     Indication: OSTEITIS
     Route: 065
  8. PREDNISONE TAB [Suspect]
     Dosage: TWO DOSES; THEN ORAL 30 MG/DAY
     Route: 040
  9. PREDNISONE TAB [Suspect]
     Dosage: 10 MG/DAY; THEN TWO IV BOLUSES
     Route: 065

REACTIONS (7)
  - HUMAN HERPESVIRUS 6 INFECTION [None]
  - CYTOLYTIC HEPATITIS [None]
  - BASEDOW'S DISEASE [None]
  - ARTHRALGIA [None]
  - DRUG RASH WITH EOSINOPHILIA AND SYSTEMIC SYMPTOMS [None]
  - MYALGIA [None]
  - RENAL FAILURE ACUTE [None]
